FAERS Safety Report 9717548 (Version 2)
Quarter: 2013Q4

REPORT INFORMATION
  Report Type: Spontaneous
  Country: US (occurrence: US)
  Receive Date: 20131127
  Receipt Date: 20131127
  Transmission Date: 20140711
  Serious: No
  Sender: FDA-Public Use
  Company Number: US-GILEAD-2009-0020856

PATIENT
  Sex: Female

DRUGS (18)
  1. LETAIRIS [Suspect]
     Indication: PULMONARY ARTERIAL HYPERTENSION
     Dates: start: 20090225
  2. METOPROLOL [Concomitant]
  3. COREG [Concomitant]
  4. AVALIDE [Concomitant]
  5. CRESTOR [Concomitant]
  6. FUROSEMIDE [Concomitant]
  7. COUMADIN [Concomitant]
  8. NTG [Concomitant]
  9. HUMALOG [Concomitant]
  10. JANUVIA [Concomitant]
  11. LEVIMIR [Concomitant]
  12. GLYBURIDE/METFORMIN [Concomitant]
  13. PLETAL [Concomitant]
  14. OMNICEF [Concomitant]
  15. SYNTHROID [Concomitant]
  16. BACTRIM DS [Concomitant]
  17. CLONIDINE [Concomitant]
  18. K CHLORIDE [Concomitant]

REACTIONS (1)
  - Dyspnoea [Recovered/Resolved]
